FAERS Safety Report 18220413 (Version 2)
Quarter: 2020Q4

REPORT INFORMATION
  Report Type: Report from Study
  Country: None (occurrence: DE)
  Receive Date: 20200902
  Receipt Date: 20201008
  Transmission Date: 20210113
  Serious: Yes (Hospitalization, Other)
  Sender: FDA-Public Use
  Company Number: DE-ABBVIE-20K-062-3498169-00

PATIENT
  Age: 62 Year
  Sex: Male
  Weight: 85 kg

DRUGS (4)
  1. HUMIRA [Suspect]
     Active Substance: ADALIMUMAB
     Indication: RHEUMATOID ARTHRITIS
  2. IMRALDI [Concomitant]
     Active Substance: ADALIMUMAB
     Indication: RHEUMATOID ARTHRITIS
  3. HUMIRA [Suspect]
     Active Substance: ADALIMUMAB
     Indication: ANKYLOSING SPONDYLITIS
     Route: 058
     Dates: start: 20100114, end: 20200625
  4. CANDESARTAN. [Concomitant]
     Active Substance: CANDESARTAN
     Indication: HYPERTENSION
     Route: 048
     Dates: start: 20000103, end: 20200812

REACTIONS (42)
  - Colon neoplasm [Unknown]
  - Oxygen saturation increased [Unknown]
  - PO2 decreased [Recovered/Resolved]
  - Blood sodium increased [Unknown]
  - Activated partial thromboplastin time prolonged [Unknown]
  - C-reactive protein increased [Unknown]
  - Lymphadenopathy [Not Recovered/Not Resolved]
  - PCO2 decreased [Recovered/Resolved]
  - pH body fluid increased [Recovered/Resolved]
  - Oxygen saturation increased [Recovered/Resolved]
  - Purulence [Unknown]
  - Cellulitis [Recovered/Resolved]
  - Haematocrit decreased [Unknown]
  - Von Willebrand^s factor activity increased [Unknown]
  - pH body fluid decreased [Unknown]
  - Large intestinal ulcer [Recovered/Resolved]
  - Gastrointestinal disorder [Unknown]
  - Procedural haemorrhage [Unknown]
  - Appendicitis [Recovered/Resolved]
  - Lymphadenopathy [Not Recovered/Not Resolved]
  - Haemoglobin decreased [Unknown]
  - Blood bilirubin increased [Recovered/Resolved]
  - Platelet count increased [Unknown]
  - Abdominal discomfort [Unknown]
  - Appendix disorder [Unknown]
  - Abdominal adhesions [Unknown]
  - Base excess increased [Unknown]
  - Renal cyst [Unknown]
  - PO2 increased [Unknown]
  - Large intestine infection [Unknown]
  - Nephrolithiasis [Unknown]
  - Red blood cell count decreased [Unknown]
  - Blood fibrinogen increased [Unknown]
  - Prothrombin time shortened [Unknown]
  - Blood glucose increased [Unknown]
  - SARS-CoV-2 test positive [Unknown]
  - Serositis [Unknown]
  - Carboxyhaemoglobin increased [Unknown]
  - White blood cell count increased [Unknown]
  - Colonic abscess [Unknown]
  - Inflammatory marker increased [Recovering/Resolving]
  - Von Willebrand^s factor antigen increased [Unknown]

NARRATIVE: CASE EVENT DATE: 202001
